FAERS Safety Report 8334038 (Version 2)
Quarter: 2012Q4

REPORT INFORMATION
  Report Type: 
  Country: US (occurrence: US)
  Receive Date: 20120112
  Receipt Date: 20121129
  Transmission Date: 20130627
  Serious: Yes (Other)
  Sender: FDA-Public Use
  Company Number: US-BAYER-2012-003309

PATIENT
  Age: 29 Year
  Sex: Female
  Weight: 86.17 kg

DRUGS (4)
  1. MIRENA [Suspect]
     Indication: CONTRACEPTION
     Dosage: 20 mcg/24hr, CONT
     Route: 015
     Dates: start: 20111111, end: 20120103
  2. MIRENA [Suspect]
     Indication: CONTRACEPTION
     Dosage: 20 mcg/24hr, CONT
     Route: 015
     Dates: end: 201203
  3. EPINEPHRINE W/LIDOCAINE HYDROCHLORIDE [Concomitant]
     Indication: ANALGESIA
     Dosage: UNK
     Dates: start: 20111111, end: 20111111
  4. GENERAL LMA [Concomitant]
     Indication: ANALGESIA
     Dosage: UNK
     Dates: start: 20111111, end: 20111111

REACTIONS (5)
  - Device expulsion [Recovered/Resolved]
  - Device issue [Recovered/Resolved]
  - Genital haemorrhage [Recovered/Resolved]
  - Pain [Recovered/Resolved]
  - Device expulsion [None]
